FAERS Safety Report 9248931 (Version 1)
Quarter: 2013Q1

REPORT INFORMATION
  Report Type: Spontaneous
  Country: US (occurrence: None)
  Receive Date: 20130305
  Receipt Date: 20130305
  Transmission Date: 20140127
  Serious: Yes (Hospitalization)
  Sender: FDA-Public Use
  Company Number: 163-21880-12101241

PATIENT
  Sex: Male

DRUGS (4)
  1. REVLIMID [Suspect]
     Indication: PLASMA CELL MYELOMA
     Route: 048
     Dates: start: 20110525
  2. GABAPENTIN [Concomitant]
  3. APIDRA (INSULIN GLULISINE [Concomitant]
  4. LEVEMIR (INSULIN DETEMIR) [Concomitant]

REACTIONS (1)
  - Bacterial infection [None]
